FAERS Safety Report 9721779 (Version 1)
Quarter: 2013Q4

REPORT INFORMATION
  Report Type: Spontaneous
  Country: US (occurrence: US)
  Receive Date: 20131201
  Receipt Date: 20131201
  Transmission Date: 20140711
  Serious: No
  Sender: FDA-Public Use
  Company Number: US-ABBVIE-13P-163-1161958-00

PATIENT
  Sex: Male

DRUGS (2)
  1. ANDROGEL [Suspect]
     Indication: BLOOD TESTOSTERONE DECREASED
     Dosage: 81 MG DAILY
     Route: 061
     Dates: start: 201310
  2. ANDROGEL [Suspect]
     Dosage: 60.75 MG DAILY
     Route: 061
     Dates: end: 201310

REACTIONS (1)
  - Blood testosterone decreased [Unknown]
